FAERS Safety Report 8846264 (Version 1)
Quarter: 2012Q4

REPORT INFORMATION
  Report Type: 
  Country: CA (occurrence: CA)
  Receive Date: 20121017
  Receipt Date: 20121017
  Transmission Date: 20130627
  Serious: Yes (Hospitalization)
  Sender: FDA-Public Use
  Company Number: CA-TEVA-364299USA

PATIENT
  Age: 71 Year
  Sex: Male

DRUGS (8)
  1. BICALUTAMIDE [Suspect]
     Indication: PROSTATE CANCER
     Dosage: 1 tablet daily X 2 weeks
     Dates: start: 20121003, end: 20121007
  2. COUMADIN [Concomitant]
     Dosage: 6 Milligram Daily;
  3. VITAMIN D [Concomitant]
     Dosage: 400 ui daily
  4. CALCIUM [Concomitant]
     Dosage: 1000 Milligram Daily;
  5. ASPIRIN [Concomitant]
     Dosage: 80 Milligram Daily;
  6. METOPROLOL [Concomitant]
     Dosage: 50 Milligram Daily;
  7. EZETROL [Concomitant]
     Dosage: 10 Milligram Daily;
  8. ATORVASTATINE [Concomitant]
     Dosage: 40 Milligram Daily;

REACTIONS (5)
  - Erythema [Recovering/Resolving]
  - Blister [Recovering/Resolving]
  - Oedema mouth [Recovering/Resolving]
  - Pruritus [Recovering/Resolving]
  - Skin swelling [Recovering/Resolving]
